FAERS Safety Report 9626177 (Version 1)
Quarter: 2013Q4

REPORT INFORMATION
  Report Type: Spontaneous
  Country: JP (occurrence: JP)
  Receive Date: 20131016
  Receipt Date: 20131016
  Transmission Date: 20140711
  Serious: Yes (Other)
  Sender: FDA-Public Use
  Company Number: JP-BAYER-2013-121359

PATIENT
  Sex: 0

DRUGS (1)
  1. CIPROXAN [Suspect]
     Dosage: 32000 MG, ONCE
     Route: 048

REACTIONS (2)
  - Renal disorder [None]
  - Overdose [None]
